FAERS Safety Report 6976598-6 (Version None)
Quarter: 2010Q3

REPORT INFORMATION
  Report Type: 
  Country: None (occurrence: None)
  Receive Date: 20100910
  Receipt Date: 20100707
  Transmission Date: 20110219
  Serious: Yes (Other)
  Sender: FDA-Public Use
  Company Number: US-PFIZER INC-2010069752

PATIENT

DRUGS (7)
  1. VFEND [Suspect]
     Dosage: UNK
     Route: 042
  2. HEPARIN SODIUM [Interacting]
     Route: 042
  3. ACYCLOVIR [Interacting]
     Route: 042
  4. CYCLOSPORINE [Interacting]
     Route: 042
  5. MORPHINE [Interacting]
     Route: 042
  6. ZOFRAN [Interacting]
     Route: 042
  7. TPN ELECTROLYTES IN PLASTIC CONTAINER [Concomitant]

REACTIONS (2)
  - DRUG INTERACTION [None]
  - DRUG LEVEL DECREASED [None]
